FAERS Safety Report 25646017 (Version 1)
Quarter: 2025Q3

REPORT INFORMATION
  Report Type: Spontaneous
  Country: JP (occurrence: JP)
  Receive Date: 20250805
  Receipt Date: 20250805
  Transmission Date: 20251021
  Serious: Yes (Hospitalization, Other)
  Sender: AMGEN
  Company Number: JP-AMGEN-JPNSP2025151541

PATIENT
  Age: 64 Year
  Sex: Male

DRUGS (4)
  1. BEVACIZUMAB [Suspect]
     Active Substance: BEVACIZUMAB
     Indication: Hepatocellular carcinoma
     Route: 065
  2. ATEZOLIZUMAB [Concomitant]
     Active Substance: ATEZOLIZUMAB
     Indication: Hepatocellular carcinoma
  3. DURVALUMAB [Concomitant]
     Active Substance: DURVALUMAB
  4. TREMELIMUMAB [Concomitant]
     Active Substance: TREMELIMUMAB

REACTIONS (7)
  - Hepatocellular carcinoma [Unknown]
  - Fulminant type 1 diabetes mellitus [Unknown]
  - Hypothyroidism [Unknown]
  - Hepatic failure [Unknown]
  - Tachycardia [Unknown]
  - Hypoaesthesia [Unknown]
  - Off label use [Unknown]
